FAERS Safety Report 10009553 (Version 1)
Quarter: 2014Q1

REPORT INFORMATION
  Report Type: Spontaneous
  Country: US (occurrence: US)
  Receive Date: 20140312
  Receipt Date: 20140312
  Transmission Date: 20141002
  Serious: Yes (Other)
  Sender: FDA-Public Use
  Company Number: US-INCYTE CORPORATION-2012IN001781

PATIENT
  Age: 81 Year
  Sex: Female

DRUGS (3)
  1. JAKAFI [Suspect]
     Indication: NEOPLASM MALIGNANT
     Dosage: 15 MG, BID
     Route: 048
  2. PLAVIX [Concomitant]
  3. ALLOPURINOL [Concomitant]

REACTIONS (1)
  - Haemoglobin decreased [Not Recovered/Not Resolved]
